FAERS Safety Report 7452940-7 (Version None)
Quarter: 2011Q2

REPORT INFORMATION
  Report Type: 
  Country: None (occurrence: None)
  Receive Date: 20110502
  Receipt Date: 20101102
  Transmission Date: 20111010
  Serious: Yes (Life-Threatening, Hospitalization)
  Sender: FDA-Public Use
  Company Number: US-BAYER-201022780NA

PATIENT
  Age: 44 Year
  Sex: Female
  Weight: 71.655 kg

DRUGS (32)
  1. MELOXICAM [Concomitant]
     Dosage: UNK
     Dates: start: 20091201
  2. MELOXICAM [Concomitant]
     Dosage: UNK
     Dates: start: 20100701
  3. OXYCODONE HCL AND ACETAMINOPHEN [Concomitant]
     Dosage: UNK
     Dates: start: 20080403
  4. DROPERIDOL [Concomitant]
     Indication: NAUSEA
     Dosage: UNK
     Dates: start: 20080331, end: 20080403
  5. PERCOCET [Concomitant]
     Indication: PAIN
     Dosage: UNK
     Dates: start: 20080331
  6. ZOFRAN [Concomitant]
     Dosage: UNK
     Dates: start: 20091004
  7. PHENTERMINE [Concomitant]
     Indication: WEIGHT CONTROL
     Dosage: 37.5 MG, UNK
     Dates: start: 20080101
  8. WELLBUTRIN [Concomitant]
     Dosage: 300 MG, UNK
     Route: 048
     Dates: start: 20050912
  9. HYDROCODONE BITARTRATE AND ACETAMINOPHEN [Concomitant]
     Indication: PAIN
     Dosage: UNK
     Dates: start: 20080407
  10. CEFAZOLIN [Concomitant]
     Indication: INFECTION PROPHYLAXIS
     Dosage: UNK
     Dates: start: 20080331, end: 20080401
  11. OXYCODONE [Concomitant]
     Indication: PAIN
     Dosage: UNK
     Dates: start: 20080331, end: 20080403
  12. ACETAMINOPHEN [Concomitant]
     Indication: PAIN
     Dosage: UNK
     Dates: start: 20080331, end: 20080403
  13. IBUPROFEN [Concomitant]
     Dosage: UNK MG, UNK
     Dates: start: 20000101
  14. NAPROXEN [Concomitant]
     Dosage: UNK
     Dates: start: 20000101
  15. DOCUSATE SODIUM [Concomitant]
     Indication: CONSTIPATION
     Dosage: UNK
     Dates: start: 20080407
  16. LORAZEPAM [Concomitant]
     Indication: ANXIETY
     Dosage: 0.5 MG, UNK
     Route: 048
     Dates: start: 20080328
  17. COLACE [Concomitant]
     Indication: CONSTIPATION
     Dosage: UNK
     Dates: start: 20080407
  18. OXYCODONE [Concomitant]
     Indication: NAUSEA
  19. VICODIN [Concomitant]
     Indication: PAIN
     Dosage: UNK
     Dates: start: 20080331, end: 20080403
  20. ADACEL [Concomitant]
     Dosage: UNK
     Dates: start: 20080124
  21. IBUPROFEN [Concomitant]
     Dosage: UNK MG, UNK
     Dates: start: 20091001
  22. AMBIEN [Concomitant]
     Indication: INSOMNIA
     Dosage: UNK
     Dates: start: 20080101
  23. COMPAZINE [Concomitant]
     Indication: NAUSEA
  24. MAALOX PLUS [Concomitant]
     Indication: ABDOMINAL DISCOMFORT
     Dosage: UNK
     Dates: start: 20080331, end: 20080403
  25. PHENERGAN HCL [Concomitant]
     Indication: PAIN
     Dosage: UNK
     Dates: start: 20080331, end: 20080403
  26. YASMIN [Suspect]
     Indication: CONTRACEPTION
     Dosage: UNK
     Dates: start: 20030701, end: 20080401
  27. MELOXICAM [Concomitant]
     Dosage: UNK
     Dates: start: 20000101
  28. PROCHLORPERAZINE TAB [Concomitant]
     Indication: NAUSEA
     Dosage: 10 MG, QID
     Route: 048
     Dates: start: 20080404
  29. ZOLPIDEM [Concomitant]
     Indication: INSOMNIA
     Dosage: 10 MG, UNK
     Route: 048
     Dates: start: 20080328
  30. MORPHINE [Concomitant]
     Indication: PAIN
     Dosage: UNK
     Dates: start: 20080331, end: 20080403
  31. NAPROXEN [Concomitant]
     Dosage: UNK
     Dates: start: 20091201
  32. RESTPROIL [Concomitant]
     Indication: INSOMNIA
     Dosage: UNK
     Dates: start: 20080331, end: 20080403

REACTIONS (4)
  - PAIN [None]
  - CHOLELITHIASIS [None]
  - DEEP VEIN THROMBOSIS [None]
  - PULMONARY EMBOLISM [None]
